FAERS Safety Report 11897590 (Version 4)
Quarter: 2016Q1

REPORT INFORMATION
  Report Type: Spontaneous
  Country: GB (occurrence: GB)
  Receive Date: 20160108
  Receipt Date: 20160318
  Transmission Date: 20160526
  Serious: Yes (Other)
  Sender: FDA-Public Use
  Company Number: GB-AMGEN-GBRSP2015138517

PATIENT
  Age: 35 Year
  Sex: Male

DRUGS (1)
  1. ENBREL [Suspect]
     Active Substance: ETANERCEPT
     Indication: RHEUMATOID ARTHRITIS
     Dosage: 50 MG, WEEKLY
     Route: 058
     Dates: start: 20151202

REACTIONS (5)
  - Injection site reaction [Unknown]
  - Rash [Unknown]
  - Injection site mass [Unknown]
  - Lower respiratory tract infection [Unknown]
  - Neoplasm skin [Unknown]

NARRATIVE: CASE EVENT DATE: 201512
